FAERS Safety Report 12880202 (Version 5)
Quarter: 2018Q3

REPORT INFORMATION
  Report Type: Report from Study
  Country: IN (occurrence: IN)
  Receive Date: 20161025
  Receipt Date: 20180805
  Transmission Date: 20181010
  Serious: Yes (Death, Hospitalization, Other)
  Sender: FDA-Public Use
  Company Number: PHHY2016IN004899

PATIENT
  Age: 73 Year
  Sex: Female

DRUGS (1)
  1. GLIVEC [Suspect]
     Active Substance: IMATINIB MESYLATE
     Indication: CHRONIC MYELOID LEUKAEMIA
     Dosage: 400 MG, UNK
     Route: 065

REACTIONS (6)
  - Diabetes mellitus [Unknown]
  - Cardiac disorder [Unknown]
  - Hypertension [Unknown]
  - Lower limb fracture [Unknown]
  - Death [Fatal]
  - Upper limb fracture [Unknown]

NARRATIVE: CASE EVENT DATE: 20180704
